FAERS Safety Report 20661576 (Version 4)
Quarter: 2022Q4

REPORT INFORMATION
  Report Type: Spontaneous
  Country: JP (occurrence: JP)
  Receive Date: 20220401
  Receipt Date: 20221020
  Transmission Date: 20230113
  Serious: No
  Sender: FDA-Public Use
  Company Number: JP-GLAXOSMITHKLINE-JP2022JPN055306

PATIENT

DRUGS (9)
  1. SOTROVIMAB [Suspect]
     Active Substance: SOTROVIMAB
     Indication: COVID-19
     Dosage: 500 MG/DAY
     Route: 042
     Dates: start: 20220324, end: 20220324
  2. SUMATRIPTAN [Suspect]
     Active Substance: SUMATRIPTAN
     Indication: Migraine
     Dosage: 50 MG PER DOSE
     Route: 048
     Dates: start: 20220324, end: 20220324
  3. METOCLOPRAMIDE [Suspect]
     Active Substance: METOCLOPRAMIDE
     Indication: Hyperemesis gravidarum
     Dosage: 10 MG/DAY
     Route: 042
     Dates: start: 20220324, end: 20220324
  4. MAGNESIUM OXIDE [Suspect]
     Active Substance: MAGNESIUM OXIDE
     Indication: Constipation
     Dosage: 2000 MG/DAY
     Route: 048
     Dates: start: 20220331, end: 20220404
  5. CYANOCOBALAMIN\PYRIDOXINE HYDROCHLORIDE\THIAMINE [Suspect]
     Active Substance: CYANOCOBALAMIN\PYRIDOXINE HYDROCHLORIDE\THIAMINE
     Indication: Hyperemesis gravidarum
     Dosage: 1 V/DAY
     Route: 042
     Dates: start: 20220323, end: 20220326
  6. ASCORBIC ACID [Suspect]
     Active Substance: ASCORBIC ACID
     Indication: Hyperemesis gravidarum
     Dosage: 500 MG/DAY
     Route: 042
     Dates: start: 20220323, end: 20220326
  7. CALCIUM CHLORIDE\POTASSIUM CHLORIDE\SODIUM ACETATE\SODIUM CHLORIDE [Suspect]
     Active Substance: CALCIUM CHLORIDE\POTASSIUM CHLORIDE\SODIUM ACETATE\SODIUM CHLORIDE
     Indication: Hyperemesis gravidarum
     Dosage: 1000 ML/DAY
     Route: 042
     Dates: start: 20220323, end: 20220326
  8. CALCIUM CHLORIDE\MALTOSE\POTASSIUM CHLORIDE\SODIUM CHLORIDE\SODIUM LAC [Suspect]
     Active Substance: CALCIUM CHLORIDE\MALTOSE\POTASSIUM CHLORIDE\SODIUM CHLORIDE\SODIUM LACTATE
     Indication: Hyperemesis gravidarum
     Dosage: 1000 ML/DAY
     Route: 042
     Dates: start: 20220323, end: 20220325
  9. ACETAMINOPHEN [Suspect]
     Active Substance: ACETAMINOPHEN
     Indication: Pyrexia
     Dosage: 500 MG PER DOSE
     Route: 042
     Dates: start: 20220324, end: 20220324

REACTIONS (1)
  - Exposure during pregnancy [Unknown]
